FAERS Safety Report 7836374-9 (Version None)
Quarter: 2011Q4

REPORT INFORMATION
  Report Type: 
  Country: None (occurrence: None)
  Receive Date: 20111024
  Receipt Date: 20110714
  Transmission Date: 20120403
  Serious: No
  Sender: FDA-Public Use
  Company Number: US-BAYER-2011-062631

PATIENT
  Sex: Female

DRUGS (3)
  1. IBUPROFEN (ADVIL) [Concomitant]
     Dosage: 5
  2. ACETAMINOPHEN [Concomitant]
     Dosage: 3
  3. ALEVE (CAPLET) [Suspect]
     Indication: ANALGESIC THERAPY
     Route: 048

REACTIONS (1)
  - NO ADVERSE EVENT [None]
